FAERS Safety Report 8824653 (Version 2)
Quarter: 2014Q2

REPORT INFORMATION
  Report Type: Spontaneous
  Country: JP (occurrence: JP)
  Receive Date: 20121004
  Receipt Date: 20140402
  Transmission Date: 20141212
  Serious: Yes (Hospitalization)
  Sender: FDA-Public Use
  Company Number: PHHY2012JP085298

PATIENT
  Age: 59 Year
  Sex: Female
  Weight: 48 kg

DRUGS (2)
  1. NEORAL [Suspect]
     Indication: INTERSTITIAL LUNG DISEASE
     Dosage: 100 MG, PER DAY
     Route: 048
  2. PREDNISOLONE [Suspect]
     Indication: INTERSTITIAL LUNG DISEASE
     Dosage: 20 MG, PER DAY
     Route: 048
     Dates: start: 2006

REACTIONS (7)
  - Intestinal obstruction [Recovering/Resolving]
  - Abdominal distension [Recovered/Resolved]
  - Gastrointestinal sounds abnormal [Recovering/Resolving]
  - Abdominal distension [Recovered/Resolved]
  - Emphysema [Recovering/Resolving]
  - Erythema [Recovering/Resolving]
  - Rash [Recovering/Resolving]
